FAERS Safety Report 4976292-7 (Version None)
Quarter: 2006Q2

REPORT INFORMATION
  Report Type: 
  Country: None (occurrence: None)
  Receive Date: 20060412
  Receipt Date: 20060404
  Transmission Date: 20061013
  Serious: Yes (Hospitalization, Disabling, Other)
  Sender: FDA-Public Use
  Company Number: 2006041449

PATIENT
  Age: 70 Year
  Sex: Female
  Weight: 59.7 kg

DRUGS (3)
  1. LIPITOR [Suspect]
     Indication: TYPE IIA HYPERLIPIDAEMIA
     Dosage: 40 MG (40 MG, 1 IN 1 D), ORAL; SEE IMAGE
     Route: 048
     Dates: start: 19991101, end: 20060301
  2. LIPITOR [Suspect]
     Indication: TYPE IIA HYPERLIPIDAEMIA
     Dosage: 40 MG (40 MG, 1 IN 1 D), ORAL; SEE IMAGE
     Route: 048
     Dates: start: 19991101, end: 20060301
  3. EZETIMIBE                (EZETIMIBE) [Suspect]
     Indication: TYPE IIA HYPERLIPIDAEMIA
     Dosage: 10 MG (10 MG, 1 IN 1 D), ORAL
     Route: 048
     Dates: start: 20040601, end: 20051201

REACTIONS (1)
  - AUTOIMMUNE HEPATITIS [None]
